FAERS Safety Report 5677377-2 (Version None)
Quarter: 2008Q1

REPORT INFORMATION
  Report Type: 
  Country: None (occurrence: None)
  Receive Date: 20080324
  Receipt Date: 20080314
  Transmission Date: 20080703
  Serious: Yes (Disabling)
  Sender: FDA-Public Use
  Company Number: FR-ASTRAZENECA-2008CG00418

PATIENT
  Age: 77 Year
  Sex: Male

DRUGS (3)
  1. CASODEX [Suspect]
     Indication: PROSTATE CANCER
     Route: 048
     Dates: start: 20070801, end: 20080101
  2. CASODEX [Suspect]
     Route: 048
     Dates: start: 20080101
  3. TAREG [Concomitant]
     Indication: HYPERTENSION

REACTIONS (1)
  - DIPLOPIA [None]
